FAERS Safety Report 6381168-7 (Version None)
Quarter: 2009Q3

REPORT INFORMATION
  Report Type: 
  Country: None (occurrence: None)
  Receive Date: 20090929
  Receipt Date: 20090924
  Transmission Date: 20100115
  Serious: Yes (Death)
  Sender: FDA-Public Use
  Company Number: JP-SANOFI-SYNTHELABO-F01200900918

PATIENT
  Sex: Male
  Weight: 60 kg

DRUGS (8)
  1. DOBUTAMINE HCL [Concomitant]
     Dosage: 5 ML/HOUR
     Route: 042
     Dates: start: 20090609
  2. MIDAZOLAM HCL [Concomitant]
     Dosage: 1 ML/HOUR
     Route: 042
     Dates: start: 20090609
  3. MIOBLOCK [Concomitant]
     Dosage: 1 ML/HOUR
     Route: 042
     Dates: start: 20090609
  4. MORPHINE [Concomitant]
     Indication: ACUTE MYOCARDIAL INFARCTION
     Dosage: 3 MG
     Route: 042
     Dates: start: 20090609
  5. HEPARIN [Concomitant]
     Indication: ACUTE MYOCARDIAL INFARCTION
     Dosage: 5000 UNIT
     Route: 042
     Dates: start: 20090609
  6. ASPIRIN [Concomitant]
     Indication: ACUTE MYOCARDIAL INFARCTION
     Dosage: 300 MG
     Route: 048
     Dates: start: 20090609
  7. CLOPIDOGREL [Suspect]
     Indication: ACUTE CORONARY SYNDROME
     Dosage: STARTING DOSE 300 MG
     Route: 048
     Dates: start: 20090609, end: 20090609
  8. CLOPIDOGREL [Suspect]
     Indication: ACUTE MYOCARDIAL INFARCTION
     Dosage: STARTING DOSE 300 MG
     Route: 048
     Dates: start: 20090609, end: 20090609

REACTIONS (1)
  - MYOCARDIAL RUPTURE [None]
